FAERS Safety Report 6920777-0 (Version None)
Quarter: 2010Q3

REPORT INFORMATION
  Report Type: 
  Country: None (occurrence: None)
  Receive Date: 20100812
  Receipt Date: 20100804
  Transmission Date: 20110219
  Serious: Yes (Other)
  Sender: FDA-Public Use
  Company Number: US-BAYER-201029767NA

PATIENT
  Age: 39 Year
  Sex: Female

DRUGS (2)
  1. CIPRO [Suspect]
     Indication: CALCULUS URINARY
     Dosage: TOTAL DAILY DOSE: 500 MG
     Route: 048
     Dates: start: 20100801, end: 20100801
  2. CIPRO [Suspect]
     Route: 048
     Dates: start: 20040101, end: 20040101

REACTIONS (4)
  - MYALGIA [None]
  - PARAESTHESIA [None]
  - TENDON RUPTURE [None]
  - UTERINE PROLAPSE [None]
